FAERS Safety Report 7001741-2 (Version None)
Quarter: 2010Q3

REPORT INFORMATION
  Report Type: 
  Country: None (occurrence: None)
  Receive Date: 20100920
  Receipt Date: 20100910
  Transmission Date: 20110219
  Serious: Yes (Hospitalization)
  Sender: FDA-Public Use
  Company Number: GXKR2010DE09945

PATIENT
  Age: 1 Year
  Sex: Female

DRUGS (2)
  1. PROPRANOLOL [Suspect]
     Indication: HAEMANGIOMA
     Dosage: 2 MG/KG/DAY IN 3 SPLIT DOSES
     Route: 048
  2. VACCINES [Concomitant]

REACTIONS (4)
  - HYPERHIDROSIS [None]
  - HYPOGLYCAEMIC SEIZURE [None]
  - LETHARGY [None]
  - SOMNOLENCE [None]
